FAERS Safety Report 7622448-4 (Version None)
Quarter: 2011Q3

REPORT INFORMATION
  Report Type: 
  Country: None (occurrence: None)
  Receive Date: 20110718
  Receipt Date: 20110718
  Transmission Date: 20111222
  Serious: Yes (Other)
  Sender: FDA-Public Use
  Company Number: None

PATIENT
  Age: 72 Year
  Sex: Female
  Weight: 70.3075 kg

DRUGS (2)
  1. TRIAMTERENE AND HYDROCHLOROTHIAZIDE [Suspect]
     Indication: HYPERTENSION
     Dosage: TABLET = ONE 1 BY MOUTH DAILY TABLET  MARCH/APRIL/MAY 2011
  2. TRIAMTERENE AND HYDROCHLOROTHIAZIDE [Suspect]
     Indication: HYPERTENSION
     Dosage: TABLET= ONE, 1 BY MOUTH DAILY TABLET JUNE/JULY9 (TODAY) 2011
     Route: 048

REACTIONS (6)
  - PRODUCT SUBSTITUTION ISSUE [None]
  - PRODUCT QUALITY ISSUE [None]
  - MUSCLE TIGHTNESS [None]
  - ASTHENIA [None]
  - INSOMNIA [None]
  - DYSPHONIA [None]
